FAERS Safety Report 4691880-3 (Version None)
Quarter: 2005Q2

REPORT INFORMATION
  Report Type: 
  Country: None (occurrence: None)
  Receive Date: 20050614
  Receipt Date: 20050614
  Transmission Date: 20051028
  Serious: Yes (Other)
  Sender: FDA-Public Use
  Company Number: None

PATIENT
  Age: 54 Year
  Sex: Female
  Weight: 86.1834 kg

DRUGS (8)
  1. LITHIUM CARBONATE [Suspect]
     Indication: BIPOLAR I DISORDER
     Dosage: 1 EVERY DAY
     Dates: start: 20050519, end: 20050603
  2. LAMICTAL [Concomitant]
  3. LOTENSIN [Concomitant]
  4. SYNTHROID [Concomitant]
  5. TIAZAC [Concomitant]
  6. DIOVAN [Concomitant]
  7. ADVAIR [Concomitant]
  8. ZYRTEC [Concomitant]

REACTIONS (4)
  - DEPRESSION [None]
  - MOOD ALTERED [None]
  - PHARMACEUTICAL PRODUCT COMPLAINT [None]
  - THERAPEUTIC RESPONSE UNEXPECTED WITH DRUG SUBSTITUTION [None]
